FAERS Safety Report 4657587-3 (Version None)
Quarter: 2005Q2

REPORT INFORMATION
  Report Type: 
  Country: None (occurrence: None)
  Receive Date: 20050510
  Receipt Date: 20050420
  Transmission Date: 20051028
  Serious: Yes (Other)
  Sender: FDA-Public Use
  Company Number: PHEH2005US04558

PATIENT
  Age: 84 Year
  Sex: Female

DRUGS (8)
  1. THALIDOMIDE [Concomitant]
     Indication: MULTIPLE MYELOMA
     Dosage: 50 MG, QD
     Dates: start: 20030801
  2. RADIATION [Concomitant]
     Indication: MULTIPLE MYELOMA
     Dates: start: 20050201
  3. AREDIA [Suspect]
     Indication: MULTIPLE MYELOMA
     Dosage: 30 MG, Q MONTH
     Dates: start: 20021001
  4. INSULIN [Concomitant]
     Indication: DIABETES MELLITUS
     Dosage: SLIDING SCALE, UNK
  5. PREDNISONE [Concomitant]
     Dosage: 5 MG, UNK
  6. INDAPAMIDE [Concomitant]
     Indication: HYPERTENSION
     Dosage: 25 MG, QD
     Dates: start: 20030801
  7. ATENOLOL [Concomitant]
     Indication: HYPERTENSION
     Dosage: 25 MG, QD
  8. PROTONIX [Concomitant]
     Dosage: 40 MG, UNK

REACTIONS (3)
  - INFECTION [None]
  - OSTEOMYELITIS [None]
  - OSTEONECROSIS [None]
